FAERS Safety Report 12942933 (Version 1)
Quarter: 2016Q4

REPORT INFORMATION
  Report Type: Spontaneous
  Country: GB (occurrence: GB)
  Receive Date: 20161115
  Receipt Date: 20161115
  Transmission Date: 20170207
  Serious: Yes (Death)
  Sender: FDA-Public Use
  Company Number: GB-JNJFOC-20161113166

PATIENT
  Age: 84 Year
  Sex: Female

DRUGS (7)
  1. SERTRALINE [Concomitant]
     Active Substance: SERTRALINE HYDROCHLORIDE
     Route: 065
  2. DIETHYLAMINE SALICYLATE [Concomitant]
     Active Substance: DIETHYLAMINE SALICYLATE
     Route: 065
  3. BERIPLEX HS [Concomitant]
     Active Substance: COAGULATION FACTOR IX HUMAN\COAGULATION FACTOR VII HUMAN\COAGULATION FACTOR X HUMAN\PROTEIN C\PROTEIN S HUMAN\PROTHROMBIN
     Indication: DEPRESSED LEVEL OF CONSCIOUSNESS
     Route: 065
  4. DIGOXIN. [Concomitant]
     Active Substance: DIGOXIN
     Route: 065
  5. XARELTO [Suspect]
     Active Substance: RIVAROXABAN
     Indication: ATRIAL FIBRILLATION
     Route: 048
     Dates: start: 201609, end: 20161101
  6. WARFARIN [Concomitant]
     Active Substance: WARFARIN
     Route: 065
     Dates: end: 201609
  7. BERIPLEX HS [Concomitant]
     Active Substance: COAGULATION FACTOR IX HUMAN\COAGULATION FACTOR VII HUMAN\COAGULATION FACTOR X HUMAN\PROTEIN C\PROTEIN S HUMAN\PROTHROMBIN
     Indication: HEADACHE
     Route: 065

REACTIONS (3)
  - Depressed level of consciousness [Fatal]
  - Cerebral haemorrhage [Fatal]
  - Headache [Fatal]

NARRATIVE: CASE EVENT DATE: 20161101
